FAERS Safety Report 7842599-9 (Version None)
Quarter: 2011Q4

REPORT INFORMATION
  Report Type: 
  Country: None (occurrence: None)
  Receive Date: 20111025
  Receipt Date: 20111021
  Transmission Date: 20120403
  Serious: Yes (Death, Other)
  Sender: FDA-Public Use
  Company Number: VE-PFIZER INC-2011210988

PATIENT
  Age: 81 Year
  Sex: Female

DRUGS (5)
  1. CADUET [Suspect]
     Indication: HYPERTENSION
     Dosage: [AMLODIPINE BESILATE 5MG] /[ATORVASTATIN CALCIUM10 MG],ONCE DAILY
     Route: 048
     Dates: start: 20040101
  2. INSULIN [Concomitant]
     Indication: DIABETES MELLITUS
     Dosage: UNK
     Route: 058
  3. COZAAR [Concomitant]
     Dosage: UNK
     Route: 048
  4. DICLOFENAC POTASSIUM [Concomitant]
     Dosage: UNK
     Route: 048
  5. LASIX [Concomitant]
     Dosage: UNK
     Route: 048

REACTIONS (2)
  - PULMONARY OEDEMA [None]
  - INFARCTION [None]
